FAERS Safety Report 21038984 (Version 2)
Quarter: 2022Q3

REPORT INFORMATION
  Report Type: Spontaneous
  Country: US (occurrence: US)
  Receive Date: 20220704
  Receipt Date: 20220722
  Transmission Date: 20221027
  Serious: Yes (Other)
  Sender: FDA-Public Use
  Company Number: US-ORGANON-O2206USA001951

PATIENT
  Sex: Female
  Weight: 132.43 kg

DRUGS (2)
  1. NEXPLANON [Suspect]
     Active Substance: ETONOGESTREL
     Indication: Contraception
     Dosage: 1 IMPLANT IN LEFT ARM
     Route: 059
     Dates: start: 20220429, end: 20220615
  2. NEXPLANON [Suspect]
     Active Substance: ETONOGESTREL
     Indication: Contraception
     Dosage: 1 IMPLANT
     Route: 059
     Dates: start: 2015, end: 20210315

REACTIONS (7)
  - Device dislocation [Recovered/Resolved]
  - Implant site pain [Recovered/Resolved]
  - Implant site erythema [Recovered/Resolved]
  - Implant site pain [Recovered/Resolved]
  - Implant site papules [Recovered/Resolved]
  - Device kink [Recovered/Resolved]
  - Incorrect product administration duration [Unknown]

NARRATIVE: CASE EVENT DATE: 20180101
